FAERS Safety Report 14420895 (Version 5)
Quarter: 2023Q2

REPORT INFORMATION
  Report Type: Other
  Country: US (occurrence: None)
  Receive Date: 20180122
  Receipt Date: 20230511
  Transmission Date: 20230721
  Serious: Yes (Other)
  Sender: FDA-Public Use
  Company Number: US-ROCHE-1955297

PATIENT
  Age: 54 Year
  Sex: Female
  Weight: 63.106 kg

DRUGS (8)
  1. RITUXAN [Suspect]
     Active Substance: RITUXIMAB
     Indication: Multiple sclerosis
     Dosage: ONGOING: YES, DAY 1 AND DAY 15 REPEAT Q4 MONTH?DATE OF SERVICE; 14/AUG/2020, 28/AUG/2020
     Route: 041
     Dates: start: 2015
  2. TYSABRI [Suspect]
     Active Substance: NATALIZUMAB
     Indication: Multiple sclerosis
     Route: 065
     Dates: start: 20050127
  3. TYSABRI [Suspect]
     Active Substance: NATALIZUMAB
     Route: 065
     Dates: start: 20080116, end: 20090114
  4. TYSABRI [Suspect]
     Active Substance: NATALIZUMAB
     Route: 065
     Dates: start: 20090708, end: 20160628
  5. AMITRIPTYLINE HYDROCHLORIDE [Concomitant]
     Active Substance: AMITRIPTYLINE HYDROCHLORIDE
  6. ASPIRIN [Concomitant]
     Active Substance: ASPIRIN
  7. ESTRADIOL [Concomitant]
     Active Substance: ESTRADIOL
  8. GABAPENTIN [Concomitant]
     Active Substance: GABAPENTIN

REACTIONS (8)
  - Myocardial infarction [Unknown]
  - Off label use [Unknown]
  - Gastrointestinal disorder [Unknown]
  - Hypoaesthesia [Unknown]
  - Burning sensation [Unknown]
  - Paraesthesia [Unknown]
  - Neuropathy peripheral [Not Recovered/Not Resolved]
  - Electric shock [Unknown]

NARRATIVE: CASE EVENT DATE: 20150101
